FAERS Safety Report 6652685-7 (Version None)
Quarter: 2010Q1

REPORT INFORMATION
  Report Type: 
  Country: None (occurrence: None)
  Receive Date: 20100326
  Receipt Date: 20100312
  Transmission Date: 20100710
  Serious: Yes (Other)
  Sender: FDA-Public Use
  Company Number: IT-RANBAXY-2010RR-32175

PATIENT
  Age: 69 Year
  Sex: Female

DRUGS (12)
  1. CLARITHROMYCIN [Suspect]
     Indication: CHRONIC OBSTRUCTIVE PULMONARY DISEASE
     Dosage: 500 MG, BID
  2. BOSENTAN [Suspect]
     Indication: PULMONARY ARTERIAL HYPERTENSION
     Dosage: UNK
     Dates: start: 20031101, end: 20080801
  3. CLARITHROMYCIN [Concomitant]
     Dosage: 250 MG, BID
  4. BOSENTAN [Concomitant]
     Dosage: 125 UNK, BID
  5. ILOPROST [Concomitant]
     Dosage: UNK
     Route: 042
  6. OMEPRAZOLE [Concomitant]
     Dosage: 20 MG, UNK
  7. ASPIRIN [Concomitant]
     Dosage: 100 MG, UNK
  8. METHYLPREDNISOLONE [Concomitant]
     Dosage: 16 MG, UNK
  9. HYDROXYCHLOROQUINE SULFATE [Concomitant]
     Dosage: 200 MG, UNK
  10. PHENOBARBITAL TAB [Concomitant]
     Dosage: 100 MG, UNK
  11. FLUTICASONE PROPIONATE/SALMETEROL [Concomitant]
     Route: 055
  12. PIPERACILLIN AND TAZOBACTAM [Concomitant]
     Dosage: 2.25 G, TID

REACTIONS (2)
  - DRUG INTERACTION [None]
  - LIVER DISORDER [None]
